FAERS Safety Report 7064776-X (Version None)
Quarter: 2010Q4

REPORT INFORMATION
  Report Type: 
  Country: None (occurrence: None)
  Receive Date: 20101022
  Receipt Date: 20101022
  Transmission Date: 20110411
  Serious: Yes (Hospitalization)
  Sender: FDA-Public Use
  Company Number: None

PATIENT
  Age: 43 Year
  Sex: Female
  Weight: 61.2356 kg

DRUGS (2)
  1. LEVAQUIN [Suspect]
     Indication: BACTERIAL INFECTION
     Dosage: ONCE DAILY FOR 10 DAYS PO
     Route: 048
     Dates: start: 20100620, end: 20100629
  2. LEVAQUIN [Suspect]
     Indication: LYMPHADENOPATHY
     Dosage: ONCE DAILY FOR 10 DAYS PO
     Route: 048
     Dates: start: 20100620, end: 20100629

REACTIONS (12)
  - AMNESIA [None]
  - ANXIETY [None]
  - CONFUSIONAL STATE [None]
  - DIPLOPIA [None]
  - DRUG TOXICITY [None]
  - FEELING ABNORMAL [None]
  - IMPAIRED WORK ABILITY [None]
  - INSOMNIA [None]
  - MUSCLE DISORDER [None]
  - PARAESTHESIA [None]
  - TENDONITIS [None]
  - VISUAL IMPAIRMENT [None]
